FAERS Safety Report 10004623 (Version 1)
Quarter: 2014Q1

REPORT INFORMATION
  Report Type: Report from Study
  Country: US (occurrence: US)
  Receive Date: 20140312
  Receipt Date: 20140312
  Transmission Date: 20141002
  Serious: Yes (Hospitalization)
  Sender: FDA-Public Use
  Company Number: US-ALEXION PHARMACEUTICALS INC.-A201400743

PATIENT
  Sex: 0

DRUGS (2)
  1. SOLIRIS [Suspect]
     Indication: HAEMOLYTIC URAEMIC SYNDROME
     Dosage: 1200MG Q2W
     Route: 042
     Dates: start: 20120505
  2. LABETALOL [Concomitant]
     Indication: HYPERTENSION
     Dosage: 200 MG, BID
     Route: 065
     Dates: start: 20120203

REACTIONS (1)
  - Lymphocele [Unknown]
